FAERS Safety Report 6808232-X (Version None)
Quarter: 2010Q2

REPORT INFORMATION
  Report Type: 
  Country: None (occurrence: None)
  Receive Date: 20100629
  Receipt Date: 20090428
  Transmission Date: 20101027
  Serious: No
  Sender: FDA-Public Use
  Company Number: US-PFIZER INC-2009198563

PATIENT
  Age: 76 Year
  Sex: Male

DRUGS (5)
  1. XANAX [Suspect]
  2. LYRICA [Suspect]
  3. MORPHINE [Suspect]
     Dosage: UNK
  4. PERCOCET [Suspect]
  5. DARVOCET [Suspect]

REACTIONS (1)
  - DRUG HYPERSENSITIVITY [None]
